FAERS Safety Report 18975378 (Version 2)
Quarter: 2021Q2

REPORT INFORMATION
  Report Type: Report from Study
  Country: US (occurrence: US)
  Receive Date: 20210305
  Receipt Date: 20210522
  Transmission Date: 20210717
  Serious: Yes (Other)
  Sender: FDA-Public Use
  Company Number: NVSC2021US042550

PATIENT
  Sex: Male

DRUGS (1)
  1. ENTRESTO [Suspect]
     Active Substance: SACUBITRIL\VALSARTAN
     Indication: PRODUCT USED FOR UNKNOWN INDICATION
     Dosage: UNK, BID
     Route: 048
     Dates: start: 2016

REACTIONS (13)
  - Abdominal discomfort [Unknown]
  - Feeling abnormal [Unknown]
  - Fatigue [Unknown]
  - Visual impairment [Unknown]
  - Gait inability [Unknown]
  - Product dose omission issue [Unknown]
  - Neoplasm malignant [Unknown]
  - Cardiac disorder [Unknown]
  - Back pain [Unknown]
  - Pain in extremity [Unknown]
  - Mobility decreased [Unknown]
  - Malaise [Unknown]
  - Fall [Unknown]

NARRATIVE: CASE EVENT DATE: 2019
